FAERS Safety Report 10565753 (Version 3)
Quarter: 2015Q4

REPORT INFORMATION
  Report Type: Spontaneous
  Country: US (occurrence: US)
  Receive Date: 20141105
  Receipt Date: 20151105
  Transmission Date: 20160304
  Serious: No
  Sender: FDA-Public Use
  Company Number: US-MALLINCKRODT-T201402380

PATIENT
  Sex: Female
  Weight: 58.96 kg

DRUGS (2)
  1. FENTANYL. [Concomitant]
     Active Substance: FENTANYL
     Dosage: UNK
     Route: 062
     Dates: end: 201405
  2. FENTANYL TRANSDERMAL SYSTEM [Suspect]
     Active Substance: FENTANYL
     Indication: PAIN
     Dosage: 50 UG/HR, Q72H
     Route: 062
     Dates: start: 20140509

REACTIONS (6)
  - Drug withdrawal syndrome [Recovered/Resolved]
  - Product adhesion issue [Not Recovered/Not Resolved]
  - Dysphagia [Recovered/Resolved]
  - Dyspnoea [Recovered/Resolved]
  - Asthenia [Recovered/Resolved]
  - Muscle spasms [Recovered/Resolved]
